FAERS Safety Report 7425460-3 (Version None)
Quarter: 2011Q2

REPORT INFORMATION
  Report Type: 
  Country: None (occurrence: None)
  Receive Date: 20110418
  Receipt Date: 20110418
  Transmission Date: 20111010
  Serious: Yes (Other)
  Sender: FDA-Public Use
  Company Number: None

PATIENT
  Age: 27 Year
  Sex: Male

DRUGS (3)
  1. RITONAVIR [Concomitant]
  2. LEXIVA [Concomitant]
  3. ATRIPLA [Suspect]
     Indication: HIV INFECTION
     Dosage: 600 MG PO QHS
     Route: 048
     Dates: start: 20110128, end: 20110212

REACTIONS (1)
  - RASH [None]
